FAERS Safety Report 20497318 (Version 1)
Quarter: 2022Q1

REPORT INFORMATION
  Report Type: Spontaneous
  Country: BE (occurrence: BE)
  Receive Date: 20220221
  Receipt Date: 20220221
  Transmission Date: 20220423
  Serious: Yes (Hospitalization, Other)
  Sender: FDA-Public Use
  Company Number: BE-TEVA-2022-BE-2009260

PATIENT
  Age: 30 Year
  Sex: Female

DRUGS (19)
  1. AMOXICILLIN\CLAVULANIC ACID [Suspect]
     Active Substance: AMOXICILLIN\CLAVULANIC ACID
     Indication: Fracture infection
     Route: 065
     Dates: start: 2016
  2. CLARITHROMYCIN [Suspect]
     Active Substance: CLARITHROMYCIN
     Indication: Fracture infection
     Dosage: 1000 MILLIGRAM DAILY; DAYS 175-709
     Route: 048
     Dates: start: 2016, end: 2018
  3. PIPERACILLIN SODIUM\TAZOBACTAM SODIUM [Suspect]
     Active Substance: PIPERACILLIN SODIUM\TAZOBACTAM SODIUM
     Indication: Fracture infection
     Dosage: 18 GRAM DAILY; DAY 4-70
     Route: 042
     Dates: start: 2016, end: 2016
  4. MEROPENEM [Suspect]
     Active Substance: MEROPENEM
     Indication: Fracture infection
     Dosage: UP TO 2 G; DAY 4-70 AND DAY 175-709
     Route: 042
     Dates: start: 2016, end: 2018
  5. FLUCLOXACILLIN [Suspect]
     Active Substance: FLUCLOXACILLIN
     Indication: Fracture infection
     Dosage: 12 GRAM DAILY; DAYS 175-709
     Route: 042
     Dates: start: 2016, end: 2018
  6. SULFAMETHOXAZOLE\TRIMETHOPRIM [Suspect]
     Active Substance: SULFAMETHOXAZOLE\TRIMETHOPRIM
     Indication: Fracture infection
     Dosage: 3320 MILLIGRAM DAILY; DAYS 175-709
     Route: 048
     Dates: start: 2016, end: 2018
  7. RIFAMPIN [Suspect]
     Active Substance: RIFAMPIN
     Indication: Fracture infection
     Dosage: 450 MILLIGRAM DAILY; DAYS 175-709
     Route: 048
     Dates: start: 2016, end: 2018
  8. ETHAMBUTOL [Suspect]
     Active Substance: ETHAMBUTOL HYDROCHLORIDE
     Indication: Fracture infection
     Dosage: 1200 MILLIGRAM DAILY; DAYS 175-709
     Route: 048
     Dates: start: 2016, end: 2018
  9. COLISTIN [Suspect]
     Active Substance: COLISTIN
     Indication: Fracture infection
     Dosage: UP TO 20 MIU; DAY 4-70; DAYS 71-84 AND DAYS 175-709
     Route: 042
     Dates: start: 2016, end: 2018
  10. AMIKACIN [Suspect]
     Active Substance: AMIKACIN
     Indication: Fracture infection
     Dosage: DAY 4-70
     Route: 042
     Dates: start: 2016, end: 2016
  11. TIGECYCLINE [Suspect]
     Active Substance: TIGECYCLINE
     Indication: Fracture infection
     Dosage: 200 MILLIGRAM DAILY; DAYS 710-725
     Route: 042
     Dates: start: 2018, end: 2018
  12. VANCOMYCIN [Concomitant]
     Active Substance: VANCOMYCIN
     Indication: Fracture infection
     Dosage: 30 MG/KG DAILY; DAY 4-70
     Route: 042
     Dates: start: 2016, end: 2016
  13. FOSFOMYCIN [Concomitant]
     Active Substance: FOSFOMYCIN
     Indication: Fracture infection
     Dosage: 24 GRAM DAILY; DAY 4-70 AND DAY 71-84
     Route: 042
     Dates: start: 2016, end: 2016
  14. GENTAMICIN [Concomitant]
     Active Substance: GENTAMICIN
     Indication: Fracture infection
     Dosage: 400 MILLIGRAM DAILY; DAY 4-70
     Route: 042
     Dates: start: 2016, end: 2016
  15. AMPHOTERICIN B [Concomitant]
     Active Substance: AMPHOTERICIN B
     Indication: Mucormycosis
     Dosage: 600 MILLIGRAM DAILY; DAY 20-62
     Route: 042
     Dates: start: 2016, end: 2016
  16. POSACONAZOLE [Concomitant]
     Active Substance: POSACONAZOLE
     Indication: Fracture infection
     Dosage: 600 MILLIGRAM DAILY; DAY 20-62
     Route: 048
     Dates: start: 2016, end: 2016
  17. CIPROFLOXACIN [Concomitant]
     Active Substance: CIPROFLOXACIN
     Indication: Fracture infection
     Dosage: 1200 MILLIGRAM DAILY; DAYS 710-725
     Route: 042
     Dates: start: 2018, end: 2018
  18. MOXIFLOXACIN [Concomitant]
     Active Substance: MOXIFLOXACIN
     Indication: Fracture infection
     Dosage: 400 MILLIGRAM DAILY;
     Route: 042
     Dates: start: 2018, end: 2018
  19. MOXIFLOXACIN [Concomitant]
     Active Substance: MOXIFLOXACIN
     Indication: Fracture infection
     Route: 048
     Dates: start: 2018, end: 2018

REACTIONS (6)
  - Febrile neutropenia [Unknown]
  - Deafness [Unknown]
  - Renal tubular disorder [Unknown]
  - Pancreatitis acute [Recovered/Resolved]
  - Drug ineffective [Unknown]
  - Treatment failure [Unknown]

NARRATIVE: CASE EVENT DATE: 20160101
